FAERS Safety Report 8045992-7 (Version None)
Quarter: 2012Q1

REPORT INFORMATION
  Report Type: 
  Country: None (occurrence: None)
  Receive Date: 20120113
  Receipt Date: 20120110
  Transmission Date: 20120608
  Serious: Yes (Other)
  Sender: FDA-Public Use
  Company Number: GB-PFIZER INC-2011316925

PATIENT
  Age: 70 Year
  Sex: Female
  Weight: 77.5 kg

DRUGS (2)
  1. CANDESARTAN [Concomitant]
     Indication: ESSENTIAL HYPERTENSION
     Dosage: 32 MG, UNK
     Route: 048
     Dates: start: 20060612
  2. AMLODIPINE BESYLATE [Suspect]
     Indication: ESSENTIAL HYPERTENSION
     Dosage: 10 MG, UNK
     Route: 048
     Dates: start: 20051221, end: 20111111

REACTIONS (2)
  - CELLULITIS [None]
  - ULCER [None]
